FAERS Safety Report 11419738 (Version 1)
Quarter: 2015Q3

REPORT INFORMATION
  Report Type: Spontaneous
  Country: US (occurrence: None)
  Receive Date: 20150825
  Receipt Date: 20150825
  Transmission Date: 20151125
  Serious: Yes (Other)
  Sender: FDA-Public Use
  Company Number: None

PATIENT
  Sex: Female
  Weight: 70.31 kg

DRUGS (2)
  1. NECON BIRTH CONTROL [Concomitant]
  2. SULFATE TRIMETHOPRIM [Suspect]
     Active Substance: SULFAMETHOXAZOLE\TRIMETHOPRIM
     Indication: URINARY TRACT INFECTION
     Dosage: 1 DAY 1 PILL
     Route: 048

REACTIONS (2)
  - Chest pain [None]
  - Burning sensation [None]

NARRATIVE: CASE EVENT DATE: 20150824
